FAERS Safety Report 4747708-6 (Version None)
Quarter: 2005Q3

REPORT INFORMATION
  Report Type: 
  Country: None (occurrence: None)
  Receive Date: 20050817
  Receipt Date: 20050817
  Transmission Date: 20060218
  Serious: Yes (Hospitalization)
  Sender: FDA-Public Use
  Company Number: None

PATIENT
  Age: 49 Year
  Sex: Male
  Weight: 59 kg

DRUGS (2)
  1. RIBAVIRIN [Suspect]
     Indication: HEPATITIS C
     Dosage: 2 QAM ORAL
     Route: 048
     Dates: start: 20050321, end: 20050412
  2. PEG INTERFERON ALFA 2B [Suspect]
     Dosage: 48 MCG Q WEEK SUBCUTANEOUS
     Route: 058
     Dates: start: 20050321, end: 20050412

REACTIONS (2)
  - ANAEMIA [None]
  - THROMBOCYTOPENIA [None]
